FAERS Safety Report 6621845-3 (Version None)
Quarter: 2010Q1

REPORT INFORMATION
  Report Type: 
  Country: None (occurrence: None)
  Receive Date: 20100304
  Receipt Date: 20100217
  Transmission Date: 20100710
  Serious: Yes (Life-Threatening, Hospitalization)
  Sender: FDA-Public Use
  Company Number: AUR-APL-2010-00472

PATIENT
  Age: 19 Year
  Sex: Female

DRUGS (3)
  1. MIRTAZAPINE [Suspect]
     Indication: DEPRESSION
     Dosage: 30MG, UNK, ORAL
     Route: 048
     Dates: start: 20090923
  2. FLUOXETINE [Concomitant]
  3. LORAZEPAM [Concomitant]

REACTIONS (2)
  - ANAPHYLACTIC REACTION [None]
  - PRODUCT SUBSTITUTION ISSUE [None]
